FAERS Safety Report 19977347 (Version 1)
Quarter: 2021Q4

REPORT INFORMATION
  Report Type: Spontaneous
  Country: US (occurrence: US)
  Receive Date: 20211021
  Receipt Date: 20211021
  Transmission Date: 20220303
  Serious: Yes (Other)
  Sender: FDA-Public Use
  Company Number: US-MACLEODS PHARMACEUTICALS US LTD-MAC2021033023

PATIENT

DRUGS (5)
  1. LIDOCAINE [Suspect]
     Active Substance: LIDOCAINE
     Indication: Electrocardiogram QT prolonged
     Dosage: 30 MICROGRAM/KILOGRAM (30 MICROGRAM/(KG,MIN)), INFUSION
     Route: 042
  2. LIDOCAINE [Suspect]
     Active Substance: LIDOCAINE
     Indication: Torsade de pointes
  3. LIDOCAINE [Suspect]
     Active Substance: LIDOCAINE
     Indication: Procedural shock
  4. LIDOCAINE [Suspect]
     Active Substance: LIDOCAINE
     Indication: Ventricular fibrillation
  5. LIDOCAINE [Suspect]
     Active Substance: LIDOCAINE
     Indication: Ventricular tachycardia

REACTIONS (1)
  - Partial seizures with secondary generalisation [Recovered/Resolved]
